FAERS Safety Report 18078902 (Version 1)
Quarter: 2020Q3

REPORT INFORMATION
  Report Type: Spontaneous
  Country: US (occurrence: US)
  Receive Date: 20200727
  Receipt Date: 20200727
  Transmission Date: 20201103
  Serious: Yes (Other)
  Sender: FDA-Public Use
  Company Number: None

PATIENT
  Sex: Female
  Weight: 73.35 kg

DRUGS (13)
  1. SYSTANE NOS [Concomitant]
     Active Substance: HYPROMELLOSE 2910 (4000 MPA.S)\ POLYETHYLENE GLYCOL 400\PROPYLENE GLYCOL
  2. SUMATRIPTAN. [Concomitant]
     Active Substance: SUMATRIPTAN
  3. CYMBALTA [Concomitant]
     Active Substance: DULOXETINE HYDROCHLORIDE
  4. TRAZODONE [Concomitant]
     Active Substance: TRAZODONE HYDROCHLORIDE
  5. XIIDRA [Suspect]
     Active Substance: LIFITEGRAST
     Dosage: ?          QUANTITY:1 DROP(S);OTHER FREQUENCY:EACH EYE;?
     Route: 047
  6. RESTASIS [Concomitant]
     Active Substance: CYCLOSPORINE
  7. REFRESH TEARS [Concomitant]
     Active Substance: CARBOXYMETHYLCELLULOSE SODIUM
  8. TRAMADOL. [Concomitant]
     Active Substance: TRAMADOL
  9. VITAMIN D3 [Concomitant]
     Active Substance: CHOLECALCIFEROL
  10. METFORMIN [Concomitant]
     Active Substance: METFORMIN HYDROCHLORIDE
  11. XANAX [Concomitant]
     Active Substance: ALPRAZOLAM
  12. SYNTHROID [Concomitant]
     Active Substance: LEVOTHYROXINE SODIUM
  13. VENTOLIN HFA [Concomitant]
     Active Substance: ALBUTEROL SULFATE

REACTIONS (3)
  - Blindness transient [None]
  - Product quality issue [None]
  - Urticaria [None]
